FAERS Safety Report 4309839-4 (Version None)
Quarter: 2004Q1

REPORT INFORMATION
  Report Type: 
  Country: None (occurrence: None)
  Receive Date: 20040227
  Receipt Date: 20040122
  Transmission Date: 20041129
  Serious: No
  Sender: FDA-Public Use
  Company Number: MPS1-10154

PATIENT
  Age: 3 Year
  Sex: Male
  Weight: 15.2 kg

DRUGS (1)
  1. ALDURAZYME [Suspect]
     Indication: MUCOPOLYSACCHARIDOSIS I
     Dosage: 8.7 MG QWK IV
     Route: 042
     Dates: start: 20031002

REACTIONS (6)
  - BLOOD PRESSURE INCREASED [None]
  - CHILLS [None]
  - PYREXIA [None]
  - TACHYCARDIA [None]
  - TACHYPNOEA [None]
  - VOMITING [None]
